FAERS Safety Report 5123215-6 (Version None)
Quarter: 2006Q4

REPORT INFORMATION
  Report Type: 
  Country: None (occurrence: None)
  Receive Date: 20061006
  Receipt Date: 20060928
  Transmission Date: 20070319
  Serious: Yes (Hospitalization)
  Sender: FDA-Public Use
  Company Number: 2006-05151

PATIENT
  Age: 78 Year
  Sex: Male

DRUGS (2)
  1. METHYLPREDNISOLONE ACETATE [Suspect]
     Indication: JOINT INJECTION
     Dosage: INTRA-ARTICULAR
     Route: 014
  2. BUPIVACAINE HYDROCHLORIDE [Concomitant]

REACTIONS (1)
  - INTERVERTEBRAL DISCITIS [None]
